FAERS Safety Report 8461212-3 (Version None)
Quarter: 2012Q2

REPORT INFORMATION
  Report Type: 
  Country: None (occurrence: None)
  Receive Date: 20120618
  Receipt Date: 20120618
  Transmission Date: 20120825
  Serious: Yes (Disabling, Other)
  Sender: FDA-Public Use
  Company Number: None

PATIENT
  Sex: Female

DRUGS (1)
  1. TAXOTERE [Suspect]
     Indication: CHEMOTHERAPY
     Dosage: EVERY 3 WEEKS ID
     Route: 023
     Dates: start: 20110606, end: 20110917

REACTIONS (1)
  - ALOPECIA [None]
